FAERS Safety Report 11877096 (Version 3)
Quarter: 2016Q1

REPORT INFORMATION
  Report Type: Spontaneous
  Country: JP (occurrence: JP)
  Receive Date: 20151229
  Receipt Date: 20160215
  Transmission Date: 20160526
  Serious: Yes (Hospitalization, Other)
  Sender: FDA-Public Use
  Company Number: JP-009507513-1512JPN013547

PATIENT
  Age: 57 Year
  Sex: Female

DRUGS (2)
  1. BELSOMRA [Suspect]
     Active Substance: SUVOREXANT
     Dosage: DAILY DOSAGE UNKNOWN
     Route: 048
     Dates: start: 20151218
  2. BROTIZOLAM [Concomitant]
     Active Substance: BROTIZOLAM
     Dosage: DAILY DOSAGE UNKNOWN
     Route: 065
     Dates: end: 201512

REACTIONS (3)
  - Dyskinesia [Recovering/Resolving]
  - Feeling cold [Unknown]
  - Head titubation [Recovering/Resolving]

NARRATIVE: CASE EVENT DATE: 20151218
